FAERS Safety Report 9164461 (Version 1)
Quarter: 2013Q1

REPORT INFORMATION
  Report Type: Spontaneous
  Country: GB (occurrence: None)
  Receive Date: 20130221
  Receipt Date: 20130221
  Transmission Date: 20140127
  Serious: Yes (Other)
  Sender: FDA-Public Use
  Company Number: 2013MA001250

PATIENT
  Age: 57 Year
  Sex: Female

DRUGS (14)
  1. FLUOXETINE ORAL SOLUTION USP, 20MG/5ML (ALPHARMA) (FLUOXETINE) [Suspect]
     Indication: DEPRESSION
     Route: 048
  2. ONDANSETRON (ONDANSETRON) [Suspect]
     Indication: ANTIEMETIC SUPPORTIVE CARE
     Route: 042
     Dates: start: 20121101, end: 20121101
  3. ATROVASTATIN [Concomitant]
  4. RANITIDINE [Concomitant]
  5. SEVOFLURANE [Concomitant]
  6. FENTANYL [Concomitant]
  7. PROPOFOL [Concomitant]
  8. ATRACURIUM [Concomitant]
  9. DEXAMETHASONE [Concomitant]
  10. METRONIDAZOLE [Concomitant]
  11. GENTAMICIN [Concomitant]
  12. EPHEDRINE [Concomitant]
  13. NEOSTIGMINE [Concomitant]
  14. MANEVAC [Concomitant]

REACTIONS (2)
  - Serotonin syndrome [None]
  - Post procedural complication [None]
